FAERS Safety Report 8015446-2 (Version None)
Quarter: 2011Q4

REPORT INFORMATION
  Report Type: 
  Country: None (occurrence: None)
  Receive Date: 20111230
  Receipt Date: 20111221
  Transmission Date: 20120403
  Serious: Yes (Hospitalization)
  Sender: FDA-Public Use
  Company Number: US-BAYER-2011-033897

PATIENT
  Age: 16 Year
  Sex: Female
  Weight: 63 kg

DRUGS (3)
  1. SEPTRA [Concomitant]
     Indication: URINARY TRACT INFECTION
     Dosage: UNK UNK, QD
     Route: 048
     Dates: start: 20070428, end: 20070502
  2. YASMIN [Suspect]
     Indication: ACNE
     Dosage: UNK
     Dates: start: 20070228, end: 20070509
  3. ZYRTEC [Concomitant]
     Indication: MULTIPLE ALLERGIES
     Dosage: 10 MG, QD
     Route: 048

REACTIONS (15)
  - ANXIETY [None]
  - EMOTIONAL DISTRESS [None]
  - MUSCULOSKELETAL STIFFNESS [None]
  - OEDEMA PERIPHERAL [None]
  - HYPOAESTHESIA [None]
  - SKIN DISCOLOURATION [None]
  - GENERAL PHYSICAL HEALTH DETERIORATION [None]
  - ARTHRALGIA [None]
  - PAIN [None]
  - VARICOSE VEIN [None]
  - BURNING SENSATION [None]
  - CONTUSION [None]
  - PELVIC VENOUS THROMBOSIS [None]
  - MAY-THURNER SYNDROME [None]
  - FEAR OF DEATH [None]
